FAERS Safety Report 14588961 (Version 4)
Quarter: 2018Q2

REPORT INFORMATION
  Report Type: Spontaneous
  Country: US (occurrence: US)
  Receive Date: 20180301
  Receipt Date: 20180530
  Transmission Date: 20180711
  Serious: Yes (Hospitalization, Other)
  Sender: FDA-Public Use
  Company Number: US-VIFOR (INTERNATIONAL) INC.-VIT-2018-02073

PATIENT
  Age: 71 Year
  Sex: Male
  Weight: 122.58 kg

DRUGS (16)
  1. ERGOCALCIFEROL. [Concomitant]
     Active Substance: ERGOCALCIFEROL
  2. AMIODARONE HYDROCHLORIDE. [Concomitant]
     Active Substance: AMIODARONE HYDROCHLORIDE
  3. ELIQUIS STARTER PACK [Concomitant]
  4. CHONDROITIN SULFATE~~GLUCOSAMINE SULFATE [Concomitant]
  5. NIACIN. [Concomitant]
     Active Substance: NIACIN
  6. ALLOPURINOL. [Concomitant]
     Active Substance: ALLOPURINOL
  7. GLIPIZIDE. [Concomitant]
     Active Substance: GLIPIZIDE
  8. LOPRESSOR [Concomitant]
     Active Substance: METOPROLOL TARTRATE
  9. VITAMIN B COMPLEX [Concomitant]
     Active Substance: CYANOCOBALAMIN\DEXPANTHENOL\NIACINAMIDE\PYRIDOXINE HYDROCHLORIDE\RIBOFLAVIN 5^-PHOSPHATE SODIUM\THIAMINE HYDROCHLORIDE\VITAMIN B COMPLEX
  10. PRESERVISION/LUTEIN [Concomitant]
  11. VELTASSA [Suspect]
     Active Substance: PATIROMER
     Indication: HYPERKALAEMIA
     Route: 048
     Dates: start: 20160722
  12. BUMEX [Concomitant]
     Active Substance: BUMETANIDE
  13. FIBER [Concomitant]
     Active Substance: PSYLLIUM HUSK
  14. CYANOCOBALAMIN. [Concomitant]
     Active Substance: CYANOCOBALAMIN
  15. SALBUTAMOL SULFATE [Concomitant]
     Active Substance: ALBUTEROL SULFATE
  16. COZAAR [Concomitant]
     Active Substance: LOSARTAN POTASSIUM

REACTIONS (3)
  - Atrial flutter [Recovered/Resolved]
  - Cardiac failure congestive [Recovered/Resolved]
  - Atrial fibrillation [Recovered/Resolved]

NARRATIVE: CASE EVENT DATE: 20180214
